FAERS Safety Report 11481470 (Version 1)
Quarter: 2015Q3

REPORT INFORMATION
  Report Type: Report from Study
  Country: US (occurrence: US)
  Receive Date: 20150909
  Receipt Date: 20150909
  Transmission Date: 20151125
  Serious: Yes (Hospitalization, Other)
  Sender: FDA-Public Use
  Company Number: US-GILEAD-2015-0171245

PATIENT
  Age: 76 Year
  Sex: Female

DRUGS (1)
  1. AMBRISENTAN [Suspect]
     Active Substance: AMBRISENTAN
     Indication: PULMONARY ARTERIAL HYPERTENSION
     Dosage: 5 MG, QD
     Route: 065
     Dates: start: 20140715

REACTIONS (7)
  - Tremor [Unknown]
  - Incontinence [Unknown]
  - Joint swelling [Unknown]
  - Lethargy [Unknown]
  - Asthenia [Unknown]
  - Delirium [Unknown]
  - Fall [Unknown]

NARRATIVE: CASE EVENT DATE: 20150825
